FAERS Safety Report 9163919 (Version 1)
Quarter: 2013Q1

REPORT INFORMATION
  Report Type: Spontaneous
  Country: US (occurrence: US)
  Receive Date: 20130314
  Receipt Date: 20130314
  Transmission Date: 20140127
  Serious: Yes (Other)
  Sender: FDA-Public Use
  Company Number: PHHY2013US023922

PATIENT
  Age: 75 Year
  Sex: Female

DRUGS (5)
  1. ASCRIPTIN BUFFERED REG STRENGTH TABLETS [Suspect]
     Indication: HEADACHE
     Dosage: 2 DF, UNK
     Route: 048
     Dates: start: 1976
  2. ASCRIPTIN BUFFERED REG STRENGTH TABLETS [Suspect]
     Indication: PAIN IN EXTREMITY
  3. ASCRIPTIN BUFFERED REG STRENGTH TABLETS [Suspect]
     Indication: BACK PAIN
  4. EXCEDRIN [Concomitant]
     Indication: HEADACHE
     Dates: end: 1983
  5. HYDROCODONE [Concomitant]

REACTIONS (5)
  - Thyroid disorder [Recovered/Resolved]
  - Spinal fracture [Recovered/Resolved]
  - Ligament rupture [Not Recovered/Not Resolved]
  - Blood pressure increased [Not Recovered/Not Resolved]
  - Incorrect drug administration duration [Unknown]
